FAERS Safety Report 8790342 (Version 1)
Quarter: 2012Q4

REPORT INFORMATION
  Report Type: 
  Country: CO (occurrence: CO)
  Receive Date: 20120917
  Receipt Date: 20120917
  Transmission Date: 20130627
  Serious: Yes (Other)
  Sender: FDA-Public Use
  Company Number: CO-SHIRE-ALL1-2012-04375

PATIENT
  Age: 6 Year
  Sex: Male
  Weight: 15 kg

DRUGS (3)
  1. ELAPRASE [Suspect]
     Indication: MUCOPOLYSACCHARIDOSIS II
     Dosage: 0.5 mg/kg, Unknown
     Route: 041
     Dates: start: 20120912
  2. CAPTOPRIL [Concomitant]
     Indication: MITRAL VALVE INCOMPETENCE
     Dosage: 6.25 mg, 2x/day:bid(every 12 hours)
     Route: 048
     Dates: start: 20120701
  3. CHLORPHENIRAMINE /00072501/ [Concomitant]
     Indication: RHINITIS ALLERGIC
     Dosage: 1.2 mg, 2x/day:bid(every 12 hours)
     Route: 048
     Dates: start: 20120801

REACTIONS (1)
  - Oxygen saturation decreased [Recovered/Resolved]
